FAERS Safety Report 10392401 (Version 1)
Quarter: 2014Q3

REPORT INFORMATION
  Report Type: Spontaneous
  Country: US (occurrence: US)
  Receive Date: 20140819
  Receipt Date: 20140819
  Transmission Date: 20150326
  Serious: No
  Sender: FDA-Public Use
  Company Number: US-AMGEN INC.-USASP2014060986

PATIENT
  Age: 54 Year
  Sex: Female

DRUGS (1)
  1. ENBREL [Suspect]
     Active Substance: ETANERCEPT
     Indication: PRODUCT USED FOR UNKNOWN INDICATION
     Dosage: TWO 25 MG SYRINGES AT THE SAME TIME WEEKY
     Route: 065

REACTIONS (3)
  - Peau d^orange [Unknown]
  - Injection site pain [Unknown]
  - Injury [Unknown]
